FAERS Safety Report 7546219-2 (Version None)
Quarter: 2011Q2

REPORT INFORMATION
  Report Type: 
  Country: None (occurrence: None)
  Receive Date: 20110614
  Receipt Date: 20040107
  Transmission Date: 20111010
  Serious: Yes (Hospitalization)
  Sender: FDA-Public Use
  Company Number: PHFR2003IE04016

PATIENT
  Sex: Female

DRUGS (2)
  1. ANTIBIOTICS [Suspect]
  2. CLOZAPINE [Suspect]
     Indication: SCHIZOPHRENIA
     Route: 048
     Dates: start: 19970507

REACTIONS (2)
  - CLOSTRIDIUM DIFFICILE COLITIS [None]
  - FEMORAL NECK FRACTURE [None]
